FAERS Safety Report 25532536 (Version 1)
Quarter: 2025Q3

REPORT INFORMATION
  Report Type: Spontaneous
  Country: GB (occurrence: GB)
  Receive Date: 20250709
  Receipt Date: 20250709
  Transmission Date: 20251020
  Serious: Yes (Other)
  Sender: AUROBINDO
  Company Number: GB-MLMSERVICE-20250619-PI546922-00232-2

PATIENT
  Age: 48 Year
  Sex: Male
  Weight: 136 kg

DRUGS (15)
  1. MYCOPHENOLATE MOFETIL [Suspect]
     Active Substance: MYCOPHENOLATE MOFETIL
     Indication: Cardiac sarcoidosis
     Dosage: 500 MILLIGRAM, TWO TIMES A DAY
     Route: 065
  2. METHOTREXATE [Suspect]
     Active Substance: METHOTREXATE
     Indication: Cardiac sarcoidosis
     Route: 065
  3. METHOTREXATE [Suspect]
     Active Substance: METHOTREXATE
     Route: 065
  4. PREDNISONE [Suspect]
     Active Substance: PREDNISONE
     Indication: Cardiac sarcoidosis
     Route: 065
  5. ALBUTEROL [Concomitant]
     Active Substance: ALBUTEROL
     Indication: Respiratory distress
  6. ALBUTEROL [Concomitant]
     Active Substance: ALBUTEROL
     Indication: Asthma
  7. ALBUTEROL [Concomitant]
     Active Substance: ALBUTEROL
     Indication: Sinusitis
  8. FOLIC ACID [Concomitant]
     Active Substance: FOLIC ACID
     Indication: Cardiac sarcoidosis
     Dosage: 500 MILLIGRAM, ONCE A DAY
     Route: 065
  9. PREDNISONE [Concomitant]
     Active Substance: PREDNISONE
     Indication: Cardiac sarcoidosis
     Route: 065
  10. METOPROLOL [Concomitant]
     Active Substance: METOPROLOL
     Indication: Product used for unknown indication
     Dosage: 200 MILLIGRAM, ONCE A DAY
     Route: 065
  11. SPIRONOLACTONE [Concomitant]
     Active Substance: SPIRONOLACTONE
     Indication: Product used for unknown indication
     Dosage: 25 MILLIGRAM, ONCE A DAY
     Route: 065
  12. ENTRESTO [Concomitant]
     Active Substance: SACUBITRIL\VALSARTAN
     Indication: Product used for unknown indication
     Route: 065
  13. METHYLPREDNISOLONE [Concomitant]
     Active Substance: METHYLPREDNISOLONE
     Indication: Cardiac sarcoidosis
     Dosage: 20 MILLIGRAM, ONCE A DAY
     Route: 065
  14. METHYLPREDNISOLONE [Concomitant]
     Active Substance: METHYLPREDNISOLONE
     Dosage: 60 MILLIGRAM, ONCE A DAY (AFTER EACH SUCH FLARE-UP, THE DOSAGE WAS INCREASED TO 60 MG DAILY, FURTHER
     Route: 065
  15. LEVOMEFOLIC ACID\METHYLCOBALAMIN\TURMERIC [Concomitant]
     Active Substance: LEVOMEFOLIC ACID\METHYLCOBALAMIN\TURMERIC
     Indication: Vitamin supplementation
     Route: 065

REACTIONS (11)
  - Gout [Unknown]
  - Fatigue [Unknown]
  - Lethargy [Unknown]
  - Brain fog [Unknown]
  - Vomiting [Unknown]
  - Dizziness [Unknown]
  - Arthralgia [Unknown]
  - Vision blurred [Unknown]
  - Headache [Unknown]
  - Weight increased [Unknown]
  - Fluid retention [Unknown]
